FAERS Safety Report 5232622-2 (Version None)
Quarter: 2007Q1

REPORT INFORMATION
  Report Type: 
  Country: None (occurrence: None)
  Receive Date: 20070206
  Receipt Date: 20070206
  Transmission Date: 20070707
  Serious: Yes (Hospitalization)
  Sender: FDA-Public Use
  Company Number: None

PATIENT
  Sex: Male
  Weight: 67.5 kg

DRUGS (22)
  1. COUMADIN [Suspect]
     Indication: ATRIAL FIBRILLATION
     Dosage: 5MG QPM PO
     Route: 048
     Dates: start: 20061013
  2. ASPIRIN [Suspect]
     Indication: CARDIOVASCULAR EVENT PROPHYLAXIS
     Dosage: 325MG DAILY PO
     Route: 048
     Dates: start: 19991013
  3. HEMORRHOIDAL RTL [Concomitant]
  4. FLUNISOLIDE [Concomitant]
  5. METOPROLOL TARTRATE [Concomitant]
  6. OMEPRAZOLE [Concomitant]
  7. ATORVASTATIN CALCIUM [Concomitant]
  8. LORATADINE [Concomitant]
  9. BUSPIRONE HCL [Concomitant]
  10. METHOCARBAMOL [Concomitant]
  11. LISINOPRIL [Concomitant]
  12. VENLAFAXINE HCL [Concomitant]
  13. ALBUTEROL [Concomitant]
  14. CLONAZEPAM [Concomitant]
  15. NITROGLYCERIN [Concomitant]
  16. CARBAMIDE PEROXIDE [Concomitant]
  17. DOCUSATE NA [Concomitant]
  18. FUROSEMIDE [Concomitant]
  19. POTASSIUM CHLORIDE [Concomitant]
  20. PROMETHAZINE [Concomitant]
  21. FOLIC ACID [Concomitant]
  22. OXYCODONE HCL/APAP [Concomitant]

REACTIONS (6)
  - DIARRHOEA [None]
  - GASTRIC ULCER [None]
  - GASTROINTESTINAL DISORDER [None]
  - INTERNATIONAL NORMALISED RATIO INCREASED [None]
  - POST PROCEDURAL HAEMATOMA [None]
  - UPPER GASTROINTESTINAL HAEMORRHAGE [None]
